FAERS Safety Report 15257037 (Version 1)
Quarter: 2018Q3

REPORT INFORMATION
  Report Type: Spontaneous
  Country: US (occurrence: US)
  Receive Date: 20180808
  Receipt Date: 20180808
  Transmission Date: 20181010
  Serious: Yes (Other)
  Sender: FDA-Public Use
  Company Number: US-MYLANLABS-2018M1060413

PATIENT
  Age: 40 Year
  Sex: Male

DRUGS (1)
  1. HYDROCORTISONE. [Suspect]
     Active Substance: HYDROCORTISONE
     Indication: CUSHING^S SYNDROME
     Dosage: TREATED WITH DECREASING DOSES, INITIAL DOSE NOT STATED
     Route: 065

REACTIONS (2)
  - Sarcoidosis [Unknown]
  - Symptom masked [Unknown]
